FAERS Safety Report 12307644 (Version 1)
Quarter: 2016Q2

REPORT INFORMATION
  Report Type: Spontaneous
  Country: US (occurrence: US)
  Receive Date: 20160426
  Receipt Date: 20160426
  Transmission Date: 20160815
  Serious: No
  Sender: FDA-Public Use
  Company Number: US-ALKERMES INC.-ALK-2015-001165

PATIENT

DRUGS (1)
  1. VIVITROL [Suspect]
     Active Substance: NALTREXONE
     Indication: ALCOHOLISM
     Dosage: 380 MG, QMO
     Route: 030
     Dates: start: 2013

REACTIONS (16)
  - Visual impairment [Recovered/Resolved]
  - Dizziness [Recovered/Resolved]
  - Liquid product physical issue [None]
  - Scleral hyperaemia [None]
  - Paraesthesia [Recovered/Resolved]
  - Injection site mass [Recovered/Resolved]
  - Burning sensation [Not Recovered/Not Resolved]
  - Product colour issue [Recovered/Resolved]
  - Vision blurred [Recovered/Resolved]
  - Hypoaesthesia [Recovered/Resolved]
  - Injection site reaction [Recovered/Resolved]
  - Product reconstitution issue [Recovered/Resolved]
  - Injection site discomfort [Recovered/Resolved]
  - Product quality issue [None]
  - Disturbance in attention [None]
  - Constipation [Not Recovered/Not Resolved]

NARRATIVE: CASE EVENT DATE: 2013
